FAERS Safety Report 8888204 (Version 2)
Quarter: 2012Q4

REPORT INFORMATION
  Report Type: 
  Country: JP (occurrence: JP)
  Receive Date: 20121106
  Receipt Date: 20121107
  Transmission Date: 20130627
  Serious: Yes (Life-Threatening, Hospitalization)
  Sender: FDA-Public Use
  Company Number: JP-SANOFI-AVENTIS-2012SA079308

PATIENT
  Age: 65 Year
  Sex: Male
  Weight: 53 kg

DRUGS (12)
  1. LANTUS SOLOSTAR [Suspect]
     Indication: TYPE I DIABETES MELLITUS
     Dosage: Dose:4 unit(s)
     Route: 058
     Dates: start: 200802, end: 20120331
  2. LANTUS SOLOSTAR [Suspect]
     Indication: TYPE I DIABETES MELLITUS
     Route: 058
  3. SOLOSTAR [Suspect]
     Indication: DEVICE THERAPY
     Dates: start: 200802, end: 20120331
  4. SOLOSTAR [Suspect]
     Indication: DEVICE THERAPY
  5. INSULIN HUMAN REGULAR [Suspect]
     Indication: TYPE I DIABETES MELLITUS
     Dosage: Dose:3 unit(s)
     Route: 058
     Dates: start: 201103, end: 20120331
  6. INSULIN HUMAN [Suspect]
     Indication: TYPE I DIABETES MELLITUS
     Route: 058
  7. DIART [Concomitant]
     Indication: HYPERTENSION
     Route: 048
     Dates: start: 2010
  8. NU-LOTAN [Concomitant]
     Indication: HYPERTENSION
     Route: 048
     Dates: start: 2009
  9. THYRADIN [Concomitant]
     Indication: THYROID FUNCTION DECREASED
     Route: 048
     Dates: start: 201103
  10. LASIX [Concomitant]
     Indication: HYPERTENSION
     Route: 048
     Dates: start: 201103
  11. GASMOTIN [Concomitant]
     Indication: UNSPECIFIED DISORDER OF AUTONOMIC NERVOUS SYSTEM
     Route: 048
  12. ROCALTROL [Concomitant]
     Indication: OSTEOPOROSIS
     Route: 048

REACTIONS (5)
  - Hypoglycaemic unconsciousness [Recovered/Resolved]
  - Blood glucose decreased [Recovered/Resolved]
  - Cardiac arrest [Recovered/Resolved]
  - Pulseless electrical activity [Recovered/Resolved]
  - Respiratory arrest [Recovered/Resolved]
